FAERS Safety Report 20915586 (Version 1)
Quarter: 2022Q2

REPORT INFORMATION
  Report Type: Spontaneous
  Country: US (occurrence: US)
  Receive Date: 20220604
  Receipt Date: 20220604
  Transmission Date: 20220720
  Serious: No
  Sender: FDA-Public Use
  Company Number: US-SA-SAC20220526001963

PATIENT
  Age: 50 Year
  Sex: Male

DRUGS (14)
  1. DUPIXENT [Suspect]
     Active Substance: DUPILUMAB
     Indication: Nasal polyps
     Dosage: UNK UNK, QOW
     Dates: start: 20200910
  2. VITAMIN C [Concomitant]
     Active Substance: ASCORBIC ACID
  3. ALBUTEROL [Concomitant]
     Active Substance: ALBUTEROL
  4. BUDESONIDE [Concomitant]
     Active Substance: BUDESONIDE
  5. MELOXICAM [Concomitant]
     Active Substance: MELOXICAM
  6. OMEPRAZOLE [Concomitant]
     Active Substance: OMEPRAZOLE
  7. FLUTICASONE [Concomitant]
     Active Substance: FLUTICASONE
  8. LORATADINE [Concomitant]
     Active Substance: LORATADINE
  9. SUDOGEST [Concomitant]
     Active Substance: PSEUDOEPHEDRINE HYDROCHLORIDE
  10. AMLODIPINE [Concomitant]
     Active Substance: AMLODIPINE BESYLATE
  11. LOSARTAN [Concomitant]
     Active Substance: LOSARTAN
  12. TRIAMTERENE [Concomitant]
     Active Substance: TRIAMTERENE
  13. VITAMINS NOS [Concomitant]
     Active Substance: VITAMINS
  14. SINGULAIR [Concomitant]
     Active Substance: MONTELUKAST SODIUM

REACTIONS (1)
  - COVID-19 [Unknown]

NARRATIVE: CASE EVENT DATE: 20220524
